FAERS Safety Report 9692748 (Version 1)
Quarter: 2013Q4

REPORT INFORMATION
  Report Type: Spontaneous
  Country: SI (occurrence: SI)
  Receive Date: 20131118
  Receipt Date: 20131118
  Transmission Date: 20140711
  Serious: Yes (Other)
  Sender: FDA-Public Use
  Company Number: SI-BAYER-2013-134876

PATIENT
  Sex: Female
  Weight: 2.12 kg

DRUGS (6)
  1. ACETYLSALICYLIC ACID({=100 MG) [Suspect]
     Dosage: UNK
     Route: 064
  2. ACETYLSALICYLIC ACID({=100 MG) [Suspect]
     Dosage: UNK
     Route: 064
  3. FRAGMIN [Concomitant]
     Route: 064
  4. FRAGMIN [Concomitant]
     Route: 064
  5. BETAMETHASONE [Concomitant]
     Dosage: 14 MG, QD, 2 DOSES
     Route: 064
  6. BETAMETHASONE [Concomitant]
     Dosage: 14 MG, QD, 2 DOSES
     Route: 064

REACTIONS (3)
  - Foetal exposure during pregnancy [None]
  - Premature baby [None]
  - Low birth weight baby [None]
